FAERS Safety Report 6737240-2 (Version None)
Quarter: 2010Q2

REPORT INFORMATION
  Report Type: 
  Country: None (occurrence: None)
  Receive Date: 20100524
  Receipt Date: 20100514
  Transmission Date: 20101027
  Serious: No
  Sender: FDA-Public Use
  Company Number: US-BIOGENIDEC-2010BI016512

PATIENT
  Sex: Female

DRUGS (3)
  1. TYSABRI [Suspect]
     Indication: MULTIPLE SCLEROSIS
     Route: 042
     Dates: start: 20070827, end: 20071119
  2. TYSABRI [Suspect]
     Route: 042
     Dates: start: 20090925
  3. SOLU-MEDROL [Concomitant]

REACTIONS (6)
  - EPICONDYLITIS [None]
  - FALL [None]
  - HOT FLUSH [None]
  - IMMUNE SYSTEM DISORDER [None]
  - MULTIPLE SCLEROSIS RELAPSE [None]
  - VIRAL INFECTION [None]
